FAERS Safety Report 9131134 (Version 1)
Quarter: 2013Q1

REPORT INFORMATION
  Report Type: Spontaneous
  Country: US (occurrence: US)
  Receive Date: 20130301
  Receipt Date: 20130301
  Transmission Date: 20140127
  Serious: No
  Sender: FDA-Public Use
  Company Number: US-VERTEX PHARMACEUTICALS INC.-2013-002854

PATIENT
  Age: 54 Year
  Sex: Female

DRUGS (3)
  1. INCIVEK [Suspect]
     Indication: HEPATITIS C
     Dosage: 750 MG, TID
     Route: 048
     Dates: start: 20130216
  2. COPEGUS [Suspect]
     Indication: HEPATITIS C
     Dosage: 600 MG IN AM/400 MG IN PM
     Dates: start: 20130216
  3. PEGASYS [Suspect]
     Indication: HEPATITIS C
     Dosage: 180 ?G, QW
     Route: 058
     Dates: start: 20130216

REACTIONS (2)
  - Inappropriate schedule of drug administration [Unknown]
  - Decreased appetite [Not Recovered/Not Resolved]
